FAERS Safety Report 5397544-5 (Version None)
Quarter: 2007Q3

REPORT INFORMATION
  Report Type: 
  Country: None (occurrence: None)
  Receive Date: 20070726
  Receipt Date: 20070720
  Transmission Date: 20080115
  Serious: Yes (Hospitalization)
  Sender: FDA-Public Use
  Company Number: GB-JNJFOC-20070704190

PATIENT
  Age: 7 Year
  Sex: Male

DRUGS (3)
  1. CHILDREN'S IBUPROFEN [Suspect]
     Indication: DRUG USE FOR UNKNOWN INDICATION
     Dosage: 10 MG/KG/DOSE EVERY 8 HOURS
  2. DICLOFENAC SODIUM [Suspect]
     Indication: DRUG USE FOR UNKNOWN INDICATION
     Dosage: DOSE UNKNOWN
     Route: 054
  3. INDOMETHACIN [Suspect]
     Indication: DRUG USE FOR UNKNOWN INDICATION
     Dosage: FOR 48 HOURS PRIOR TO SURGERY

REACTIONS (2)
  - PROCEDURAL VOMITING [None]
  - RENAL FAILURE ACUTE [None]
